FAERS Safety Report 15805076 (Version 1)
Quarter: 2019Q1

REPORT INFORMATION
  Report Type: Spontaneous
  Country: US (occurrence: US)
  Receive Date: 20190110
  Receipt Date: 20190110
  Transmission Date: 20190417
  Serious: No
  Sender: FDA-Public Use
  Company Number: US-TEVA-2019-US-997054

PATIENT
  Sex: Female

DRUGS (2)
  1. TEVA DIAZEPAM [Suspect]
     Active Substance: DIAZEPAM
     Route: 065
     Dates: start: 201812
  2. WELLBUTRIN [Suspect]
     Active Substance: BUPROPION HYDROCHLORIDE
     Route: 065
     Dates: start: 201812

REACTIONS (1)
  - Insomnia [Unknown]

NARRATIVE: CASE EVENT DATE: 2018
